FAERS Safety Report 20518989 (Version 1)
Quarter: 2022Q1

REPORT INFORMATION
  Report Type: Spontaneous
  Country: US (occurrence: US)
  Receive Date: 20220225
  Receipt Date: 20220225
  Transmission Date: 20220423
  Serious: No
  Sender: FDA-Public Use
  Company Number: US-NOVOPROD-782065

PATIENT
  Age: 68 Year
  Sex: Female

DRUGS (2)
  1. VICTOZA [Suspect]
     Active Substance: LIRAGLUTIDE
     Indication: Type 2 diabetes mellitus
     Dosage: UNK
     Route: 058
  2. WARFARIN [Concomitant]
     Active Substance: WARFARIN
     Indication: Product used for unknown indication
     Dosage: UNK

REACTIONS (5)
  - Poor quality sleep [Unknown]
  - Blood glucose increased [Unknown]
  - Decreased appetite [Unknown]
  - Product dose omission issue [Unknown]
  - Malaise [Unknown]

NARRATIVE: CASE EVENT DATE: 20210207
